FAERS Safety Report 8305810-6 (Version None)
Quarter: 2012Q2

REPORT INFORMATION
  Report Type: 
  Country: None (occurrence: None)
  Receive Date: 20120423
  Receipt Date: 20120417
  Transmission Date: 20120825
  Serious: Yes (Hospitalization, Other)
  Sender: FDA-Public Use
  Company Number: BR-PFIZER INC-2012096373

PATIENT
  Age: 58 Year
  Sex: Male

DRUGS (1)
  1. XALATAN [Suspect]
     Indication: GLAUCOMA
     Dosage: 1.5 UG (ONE DROP IN RIGHT EYE)
     Route: 047
     Dates: start: 20050101

REACTIONS (3)
  - VISUAL ACUITY REDUCED [None]
  - EYE OPERATION [None]
  - GLAUCOMA [None]
